FAERS Safety Report 6652009-5 (Version None)
Quarter: 2010Q1

REPORT INFORMATION
  Report Type: 
  Country: None (occurrence: None)
  Receive Date: 20100323
  Receipt Date: 20091105
  Transmission Date: 20100710
  Serious: Yes (Disabling)
  Sender: FDA-Public Use
  Company Number: LEO-2010-00096

PATIENT
  Age: 36 Year
  Sex: Female

DRUGS (17)
  1. INNOHEP [Suspect]
     Indication: DEEP VEIN THROMBOSIS
     Dosage: SEE IMAGE
     Route: 058
     Dates: start: 19971217, end: 19980204
  2. INNOHEP [Suspect]
     Indication: DEEP VEIN THROMBOSIS
     Dosage: SEE IMAGE
     Route: 058
     Dates: start: 19980206, end: 19980331
  3. INNOHEP [Suspect]
     Indication: DEEP VEIN THROMBOSIS
     Dosage: SEE IMAGE
     Route: 058
     Dates: start: 19980626, end: 19980706
  4. INNOHEP [Suspect]
     Indication: DEEP VEIN THROMBOSIS
     Dosage: SEE IMAGE
     Route: 058
     Dates: start: 19980331
  5. INNOHEP [Suspect]
     Indication: DEEP VEIN THROMBOSIS
     Dosage: SEE IMAGE
     Route: 058
     Dates: start: 19980624
  6. ENOXAPARIN SODIUM [Concomitant]
  7. CLOTRIMAZOLE [Concomitant]
  8. FLOXACILLIN SODIUM [Concomitant]
  9. ACETAMINOPHEN [Concomitant]
  10. RANTIDINE (RANITIDINE HYDROCHLORIDE) [Concomitant]
  11. METOCLOPRAMIDE (METOCLOPRAMIDE HYDROCHLORIDE) [Concomitant]
  12. SODIUM CITRATE [Concomitant]
  13. BUPIVICANE (FENTANYL) [Concomitant]
  14. EPHEDRINE SUL CAP [Concomitant]
  15. SYNTOCINON [Concomitant]
  16. AUGMENTIN '125' [Concomitant]
  17. FENTANYL-100 [Concomitant]

REACTIONS (3)
  - CAESAREAN SECTION [None]
  - DRUG EXPOSURE DURING PREGNANCY [None]
  - DRUG INEFFECTIVE [None]
